FAERS Safety Report 18840657 (Version 1)
Quarter: 2021Q1

REPORT INFORMATION
  Report Type: Spontaneous
  Country: ES (occurrence: ES)
  Receive Date: 20210204
  Receipt Date: 20210204
  Transmission Date: 20210419
  Serious: Yes (Other)
  Sender: FDA-Public Use
  Company Number: ES-CIPLA LTD.-2021ES00744

PATIENT

DRUGS (6)
  1. PREDNISONE. [Concomitant]
     Active Substance: PREDNISONE
     Dosage: UNK, DECREASED DOSES
     Route: 065
     Dates: start: 201612
  2. TACROLIMUS. [Concomitant]
     Active Substance: TACROLIMUS
     Dosage: 4 MILLIGRAM, QD (4 MG/24H)
     Route: 065
     Dates: start: 20160718, end: 20170309
  3. TACROLIMUS. [Concomitant]
     Active Substance: TACROLIMUS
     Indication: IMMUNOSUPPRESSION
     Dosage: UNK
     Route: 065
     Dates: start: 2004
  4. PREDNISONE. [Concomitant]
     Active Substance: PREDNISONE
     Indication: IMMUNOSUPPRESSION
     Dosage: UNK
     Route: 065
     Dates: start: 2004
  5. TACROLIMUS. [Concomitant]
     Active Substance: TACROLIMUS
     Dosage: 3 MILLIGRAM, QD (3 MG/24H)
     Route: 065
     Dates: start: 20170309
  6. ENTECAVIR. [Suspect]
     Active Substance: ENTECAVIR
     Indication: HEPATITIS B REACTIVATION
     Dosage: 0.5 MILLIGRAM, EVERY 5 DAYS
     Route: 065
     Dates: start: 20170309, end: 2017

REACTIONS (2)
  - Drug resistance [Unknown]
  - Drug ineffective [Unknown]

NARRATIVE: CASE EVENT DATE: 2017
